FAERS Safety Report 16923877 (Version 2)
Quarter: 2019Q4

REPORT INFORMATION
  Report Type: Spontaneous
  Country: IT (occurrence: IT)
  Receive Date: 20191016
  Receipt Date: 20191219
  Transmission Date: 20200122
  Serious: Yes (Other)
  Sender: FDA-Public Use
  Company Number: NVSC2019IT000888

PATIENT
  Age: 71 Year
  Sex: Male

DRUGS (8)
  1. VINCRISTINE [Suspect]
     Active Substance: VINCRISTINE
     Indication: B-CELL LYMPHOMA
  2. BICALUTAMIDE. [Concomitant]
     Active Substance: BICALUTAMIDE
     Indication: ANDROGEN THERAPY
     Dosage: 150 MG, QD
     Route: 065
  3. PREDNISOLONE. [Suspect]
     Active Substance: PREDNISOLONE
     Indication: B-CELL LYMPHOMA
     Dosage: 40 MG/M2 (R-CHOP REGIMEN) EVERY 21 DAYS
     Route: 065
     Dates: start: 201606, end: 201610
  4. CYCLOPHOSPHAMIDE. [Suspect]
     Active Substance: CYCLOPHOSPHAMIDE
     Indication: B-CELL LYMPHOMA
     Dosage: 750 MG/M2 (R-CHOP), EVERY 21 DAYS
     Route: 065
  5. DOXORUBICIN [Suspect]
     Active Substance: DOXORUBICIN
     Indication: B-CELL LYMPHOMA
     Dosage: 50 MG/M2 (R-CHOP REGIMEN), EVERY 21 DAYS
     Route: 065
     Dates: start: 201606, end: 201610
  6. RITUXIMAB. [Suspect]
     Active Substance: RITUXIMAB
     Indication: B-CELL LYMPHOMA
     Dosage: 375 MG/M2 (R-CHOP), EVERY 21 DAYS
     Route: 042
  7. TRIPTORELIN [Concomitant]
     Active Substance: TRIPTORELIN
     Indication: ANDROGEN THERAPY
     Dosage: 3.75 MG/ MONTH
     Route: 065
  8. VINCRISTINE [Suspect]
     Active Substance: VINCRISTINE
     Indication: B-CELL LYMPHOMA
     Dosage: 1.4 MG/M2 (R-CHOP REGIMEN), EVERY 21 DAYS
     Route: 065
     Dates: start: 201606, end: 201610

REACTIONS (8)
  - Anaemia [Unknown]
  - Erectile dysfunction [Unknown]
  - Neutropenia [Unknown]
  - Fatigue [Unknown]
  - Breast swelling [Unknown]
  - Product use issue [Unknown]
  - Colitis ulcerative [Unknown]
  - Asthenia [Unknown]
